FAERS Safety Report 9677136 (Version 1)
Quarter: 2013Q4

REPORT INFORMATION
  Report Type: Spontaneous
  Country: CA (occurrence: CA)
  Receive Date: 20131108
  Receipt Date: 20131108
  Transmission Date: 20140711
  Serious: Yes (Other)
  Sender: FDA-Public Use
  Company Number: CA-JNJFOC-20131016604

PATIENT
  Sex: Female

DRUGS (3)
  1. TYLENOL ANALGESIC UNKNOWN [Suspect]
     Route: 065
  2. TYLENOL ANALGESIC UNKNOWN [Suspect]
     Indication: HEADACHE
     Route: 065
  3. ALCOHOL [Suspect]
     Indication: OFF LABEL USE
     Route: 065

REACTIONS (1)
  - Hepatic failure [Unknown]
